FAERS Safety Report 6148285-8 (Version None)
Quarter: 2009Q2

REPORT INFORMATION
  Report Type: 
  Country: None (occurrence: None)
  Receive Date: 20090406
  Receipt Date: 20090324
  Transmission Date: 20091009
  Serious: Yes (Hospitalization)
  Sender: FDA-Public Use
  Company Number: GXKR2009US03833

PATIENT
  Age: 56 Year
  Sex: Male

DRUGS (14)
  1. CYCLOSPORINE [Suspect]
     Dosage: 75 MG, BID
  2. SIMVASTATIN [Suspect]
     Dosage: 40 MG
  3. METOPROLOL TARTRATE [Concomitant]
  4. FUROSEMIDE [Concomitant]
  5. CARVEDILOL [Suspect]
     Dosage: 12.5 MG, BID
  6. DILTIAZEM [Suspect]
     Dosage: 60 MG, BID
  7. RANOLAZINE (RANOLAZINE) [Suspect]
     Dosage: 500 MG
  8. TAMSULOSIN HCL [Concomitant]
  9. SERTRALINE HCL [Concomitant]
  10. FLUDROCORTISONE [Concomitant]
  11. CLONIDINE [Concomitant]
  12. ESOMEPRAZOLE [Concomitant]
  13. CLOPIDOGREL [Concomitant]
  14. INSULIN GLARGINE [Concomitant]

REACTIONS (6)
  - ANGINA PECTORIS [None]
  - ASPARTATE AMINOTRANSFERASE INCREASED [None]
  - CARDIAC FAILURE [None]
  - DRUG INTERACTION [None]
  - DRUG LEVEL INCREASED [None]
  - RHABDOMYOLYSIS [None]
